FAERS Safety Report 15171483 (Version 1)
Quarter: 2018Q3

REPORT INFORMATION
  Report Type: Spontaneous
  Country: US (occurrence: US)
  Receive Date: 20180720
  Receipt Date: 20180720
  Transmission Date: 20181010
  Serious: Yes (Life-Threatening, Other)
  Sender: FDA-Public Use
  Company Number: US-GLENMARK PHARMACEUTICALS-2018GMK036579

PATIENT
  Age: 76 Year
  Sex: Female

DRUGS (7)
  1. TRETINOIN. [Suspect]
     Active Substance: TRETINOIN
     Indication: ACUTE PROMYELOCYTIC LEUKAEMIA
     Dosage: CONSOLIDATION CHEMOTHERAPY CONSISTING OF INTERMITTENT ATRA; CYCLICAL
     Route: 065
  2. TRETINOIN. [Suspect]
     Active Substance: TRETINOIN
     Dosage: 45 MG/M2 /DAY ?INDUCTION CHEMOTHERAPY; CYCLICAL
     Route: 065
  3. IDARUBICIN [Suspect]
     Active Substance: IDARUBICIN
     Dosage: INDUCTION CHEMOTHERAPY; CYCLICAL
     Route: 065
  4. METHOTREXATE. [Suspect]
     Active Substance: METHOTREXATE
     Indication: ACUTE PROMYELOCYTIC LEUKAEMIA
     Dosage: MAINTENANCE THERAPY ? 15 MG WEEKLY; CYCLICAL
     Route: 065
  5. IDARUBICIN [Suspect]
     Active Substance: IDARUBICIN
     Indication: ACUTE PROMYELOCYTIC LEUKAEMIA
     Dosage: CONSOLIDATION CHEMOTHERAPY CONSISTING OF INTERMITTENT IDARUBICIN; CYCLICAL
     Route: 065
  6. ARSENIC TRIOXIDE [Suspect]
     Active Substance: ARSENIC TRIOXIDE
     Indication: ACUTE PROMYELOCYTIC LEUKAEMIA
     Dosage: CONSOLIDATION CONTINUED WITH ARSENIC TRIOXIDE (ATO) 45 MG DAILY FOR 5 DAYS PER WEEK FOR 3 WEEKS
     Route: 065
  7. TRETINOIN. [Suspect]
     Active Substance: TRETINOIN
     Dosage: MAINTENANCE THERAPY ? CYCLICAL
     Route: 065

REACTIONS (2)
  - Chromosomal deletion [Unknown]
  - Haematopoietic neoplasm [Unknown]
